FAERS Safety Report 4834945-5 (Version None)
Quarter: 2005Q4

REPORT INFORMATION
  Report Type: 
  Country: None (occurrence: None)
  Receive Date: 20051115
  Receipt Date: 20051101
  Transmission Date: 20060501
  Serious: Yes (Hospitalization)
  Sender: FDA-Public Use
  Company Number: US015422

PATIENT
  Age: 62 Year
  Sex: Female
  Weight: 89.8122 kg

DRUGS (1)
  1. PROVIGIL [Suspect]
     Dosage: 200 MG QD ORAL
     Route: 048
     Dates: start: 20050418

REACTIONS (1)
  - ATRIAL FIBRILLATION [None]
